FAERS Safety Report 6396845-1 (Version None)
Quarter: 2009Q4

REPORT INFORMATION
  Report Type: 
  Country: None (occurrence: None)
  Receive Date: 20091012
  Receipt Date: 20090724
  Transmission Date: 20100525
  Serious: No
  Sender: FDA-Public Use
  Company Number: US-ASTRAZENECA-2009UW15806

PATIENT
  Age: 81 Year
  Sex: Female
  Weight: 81.6 kg

DRUGS (2)
  1. SYMBICORT [Suspect]
     Route: 055
     Dates: start: 20090611
  2. DIABETES MEDICATION [Concomitant]

REACTIONS (2)
  - CHEST DISCOMFORT [None]
  - DRUG INEFFECTIVE [None]
